FAERS Safety Report 7413369-0 (Version None)
Quarter: 2011Q2

REPORT INFORMATION
  Report Type: 
  Country: None (occurrence: None)
  Receive Date: 20110413
  Receipt Date: 20110408
  Transmission Date: 20111010
  Serious: Yes (Death, Other)
  Sender: FDA-Public Use
  Company Number: JP-ABBOTT-11P-087-0717671-00

PATIENT
  Age: 55 Year
  Sex: Male

DRUGS (3)
  1. PREDNISOLONE [Suspect]
     Indication: IMMUNOSUPPRESSION
  2. CYCLOSPORINE [Suspect]
     Indication: IMMUNOSUPPRESSION
  3. METHYLPREDNISOLONE [Suspect]
     Indication: IMMUNOSUPPRESSION

REACTIONS (3)
  - CYTOMEGALOVIRUS GASTROINTESTINAL INFECTION [None]
  - SHOCK HAEMORRHAGIC [None]
  - GASTROINTESTINAL HAEMORRHAGE [None]
